FAERS Safety Report 6056833-1 (Version None)
Quarter: 2009Q1

REPORT INFORMATION
  Report Type: 
  Country: None (occurrence: None)
  Receive Date: 20090129
  Receipt Date: 20090114
  Transmission Date: 20090719
  Serious: Yes (Hospitalization)
  Sender: FDA-Public Use
  Company Number: US-ASTRAZENECA-2008UW27295

PATIENT
  Age: 48 Year
  Sex: Male
  Weight: 100 kg

DRUGS (14)
  1. SEROQUEL [Suspect]
     Indication: SCHIZOAFFECTIVE DISORDER
     Route: 048
     Dates: start: 19880101
  2. SEROQUEL [Suspect]
     Route: 048
     Dates: start: 19880101
  3. KLONOPIN [Suspect]
     Indication: DEPRESSION
     Route: 048
     Dates: start: 20070901
  4. KLONOPIN [Suspect]
     Indication: ANXIETY
     Route: 048
     Dates: start: 20070901
  5. SYMBICORT CODE NOT BROKEN [Suspect]
     Dosage: 160/4.5 UG
     Route: 055
     Dates: start: 20081117
  6. LISINOPRIL [Concomitant]
     Indication: HYPERTENSION
     Route: 048
     Dates: start: 20080101
  7. PREVACID [Concomitant]
     Indication: GASTROOESOPHAGEAL REFLUX DISEASE
     Route: 048
     Dates: start: 20040101
  8. MULTI-VITAMIN [Concomitant]
     Indication: MEDICAL DIET
     Dosage: 1 TAB
     Route: 048
     Dates: start: 20030101
  9. ASPIRIN [Concomitant]
     Indication: CARDIOVASCULAR EVENT PROPHYLAXIS
     Route: 048
     Dates: start: 20060101
  10. PROVENTIL [Concomitant]
     Indication: ASTHMA
     Route: 055
     Dates: start: 20030101, end: 20081026
  11. PULMICORT FLEXHALER [Concomitant]
     Indication: ASTHMA
     Route: 055
     Dates: start: 20080923, end: 20081026
  12. HALDOL [Concomitant]
     Indication: SCHIZOPHRENIA
     Route: 030
     Dates: start: 20081115, end: 20081123
  13. HALDOL [Concomitant]
     Route: 030
     Dates: start: 20081124
  14. ACETAMINOPHEN [Concomitant]
     Indication: BACK PAIN
     Route: 048
     Dates: start: 20081108

REACTIONS (1)
  - SCHIZOPHRENIA [None]
